FAERS Safety Report 20428849 (Version 1)
Quarter: 2022Q1

REPORT INFORMATION
  Report Type: Spontaneous
  Country: US (occurrence: US)
  Receive Date: 20220204
  Receipt Date: 20220204
  Transmission Date: 20220424
  Serious: Yes (Other)
  Sender: FDA-Public Use
  Company Number: US-EUSA PHARMA (UK) LIMITED-2022US000031

PATIENT
  Sex: Male

DRUGS (4)
  1. SYLVANT [Suspect]
     Active Substance: SILTUXIMAB
     Indication: Castleman^s disease
     Dosage: UNK
     Route: 065
  2. SYLVANT [Suspect]
     Active Substance: SILTUXIMAB
     Indication: Castleman^s disease
  3. SYLVANT [Suspect]
     Active Substance: SILTUXIMAB
     Indication: POEMS syndrome
  4. SIROLIMUS [Concomitant]
     Active Substance: SIROLIMUS
     Indication: POEMS syndrome
     Route: 065

REACTIONS (2)
  - Disease progression [Recovering/Resolving]
  - Off label use [Unknown]
